FAERS Safety Report 9638121 (Version 3)
Quarter: 2013Q4

REPORT INFORMATION
  Report Type: Spontaneous
  Country: US (occurrence: US)
  Receive Date: 20131022
  Receipt Date: 20131202
  Transmission Date: 20140711
  Serious: Yes (Other)
  Sender: FDA-Public Use
  Company Number: US-PFIZER INC-2013299072

PATIENT
  Sex: Female

DRUGS (1)
  1. SUTENT [Suspect]
     Dosage: 37.5 MG, CYCLIC (12.5 MG 3 CAPSULES EVERY DAY TWO WEEKS ON AND TWO WEEKS OFF)
     Route: 048
     Dates: start: 201310, end: 201310

REACTIONS (2)
  - Dyspnoea [Unknown]
  - Malaise [Recovering/Resolving]
